FAERS Safety Report 6870616-1 (Version None)
Quarter: 2010Q3

REPORT INFORMATION
  Report Type: 
  Country: None (occurrence: None)
  Receive Date: 20100723
  Receipt Date: 20100721
  Transmission Date: 20110219
  Serious: Yes (Life-Threatening, Other)
  Sender: FDA-Public Use
  Company Number: PHHY2010CA38945

PATIENT
  Sex: Female

DRUGS (6)
  1. ACLASTA [Suspect]
     Indication: OSTEOPOROSIS
     Dosage: UNK
     Dates: start: 20090622
  2. MICARDIS [Concomitant]
     Dosage: 80 MG, QD
  3. HCT [Concomitant]
     Dosage: 25 MG, QD
  4. RABEPRAZOLE SODIUM [Concomitant]
     Dosage: 20 MG, QD
  5. FLUVOXAMINE [Concomitant]
     Dosage: 100 MG, 1/2-1 HSPRN
  6. LORAZEPAM [Concomitant]
     Dosage: 1 MG, 1/2-1 HSPRN

REACTIONS (5)
  - ANAEMIA [None]
  - BONE MARROW FAILURE [None]
  - LEUKAEMIA [None]
  - MYELODYSPLASTIC SYNDROME [None]
  - NEOPLASM MALIGNANT [None]
